FAERS Safety Report 9842683 (Version 1)
Quarter: 2013Q4

REPORT INFORMATION
  Report Type: Spontaneous
  Country: US (occurrence: None)
  Receive Date: 20131223
  Receipt Date: 20131223
  Transmission Date: 20140711
  Serious: Yes (Other)
  Sender: FDA-Public Use
  Company Number: 218620LEO

PATIENT
  Sex: Female

DRUGS (3)
  1. PICATO (0.015%, GEL) [Suspect]
     Indication: ACTINIC KERATOSIS
     Dosage: 1 IN 1 D, TOPICAL
     Route: 061
     Dates: start: 20120811
  2. MULTIPLE VITAMINS (MULTIPLE VITAMINS) [Concomitant]
  3. CALCIUM (CALCIUM) [Concomitant]

REACTIONS (4)
  - Application site erythema [None]
  - Application site swelling [None]
  - Drug administered at inappropriate site [None]
  - Drug administration error [None]
